FAERS Safety Report 25529284 (Version 1)
Quarter: 2025Q3

REPORT INFORMATION
  Report Type: Spontaneous
  Country: JP (occurrence: JP)
  Receive Date: 20250708
  Receipt Date: 20250708
  Transmission Date: 20251020
  Serious: Yes (Death)
  Sender: NOVARTIS
  Company Number: JP-002147023-NVSJ2023JP018009

PATIENT
  Age: 62 Year
  Sex: Male

DRUGS (4)
  1. KYMRIAH [Suspect]
     Active Substance: TISAGENLECLEUCEL
     Indication: Diffuse large B-cell lymphoma
     Route: 042
  2. RITUXAN [Concomitant]
     Active Substance: RITUXIMAB
     Indication: Diffuse large B-cell lymphoma
     Route: 065
  3. BENDAMUSTINE [Concomitant]
     Active Substance: BENDAMUSTINE
     Indication: Diffuse large B-cell lymphoma
     Route: 065
  4. POLATUZUMAB VEDOTIN [Concomitant]
     Active Substance: POLATUZUMAB VEDOTIN
     Indication: Diffuse large B-cell lymphoma
     Route: 065

REACTIONS (2)
  - Diffuse large B-cell lymphoma [Fatal]
  - Malignant neoplasm progression [Fatal]
